FAERS Safety Report 8746130 (Version 5)
Quarter: 2016Q1

REPORT INFORMATION
  Report Type: Report from Study
  Country: CA (occurrence: CA)
  Receive Date: 20120827
  Receipt Date: 20160120
  Transmission Date: 20160526
  Serious: Yes (Death, Hospitalization, Other)
  Sender: FDA-Public Use
  Company Number: PHHY2012CA073332

PATIENT
  Age: 82 Year
  Sex: Female
  Weight: 57 kg

DRUGS (14)
  1. ACLASTA [Suspect]
     Active Substance: ZOLEDRONIC ACID
     Dosage: UNK
     Route: 065
     Dates: start: 20121127
  2. ACLASTA [Suspect]
     Active Substance: ZOLEDRONIC ACID
     Dosage: UNK
     Route: 065
     Dates: start: 20131126
  3. ACLASTA [Suspect]
     Active Substance: ZOLEDRONIC ACID
     Indication: OSTEOPOROSIS
     Dosage: 1 DF, Q12MO (1 BAG PER YEAR)
     Route: 042
     Dates: start: 20101112
  4. THYROID [Concomitant]
     Active Substance: LEVOTHYROXINE\LIOTHYRONINE
     Indication: PRODUCT USED FOR UNKNOWN INDICATION
     Dosage: 1 DF, QD (QUANTITY 30 AND REFILL 5)
     Route: 065
  5. DOMPERIDONE MALEATE [Concomitant]
     Active Substance: DOMPERIDONE MALEATE
     Indication: PRODUCT USED FOR UNKNOWN INDICATION
     Dosage: 1 DF, QID (QUANTITY 120 AND REFILLS 1)
     Route: 065
  6. PARIET [Concomitant]
     Active Substance: RABEPRAZOLE SODIUM
     Indication: PRODUCT USED FOR UNKNOWN INDICATION
     Dosage: 1 DF, BID (QUANTITY 60 AND REFILL 5)
     Route: 065
  7. COVERSYL//PERINDOPRIL ARGININE [Concomitant]
     Active Substance: PERINDOPRIL ARGININE
     Indication: PRODUCT USED FOR UNKNOWN INDICATION
     Dosage: 1 DF, QD (QUANTITY 30 AND REFILL 5)
     Route: 065
  8. SCOPOLAMINE [Concomitant]
     Active Substance: SCOPOLAMINE
     Indication: PRODUCT USED FOR UNKNOWN INDICATION
     Dosage: 0.6 MG, Q4-6H (PRN)
     Route: 065
  9. ACLASTA [Suspect]
     Active Substance: ZOLEDRONIC ACID
     Dosage: UNK
     Route: 065
     Dates: start: 20150320
  10. NASONEX [Concomitant]
     Active Substance: MOMETASONE FUROATE
     Indication: PRODUCT USED FOR UNKNOWN INDICATION
     Route: 065
  11. ACLASTA [Suspect]
     Active Substance: ZOLEDRONIC ACID
     Dosage: UNK
     Route: 065
     Dates: start: 20111118, end: 20111118
  12. DICLOFENAC [Concomitant]
     Active Substance: DICLOFENAC
     Indication: PAIN
     Dosage: 1 DF, Q4H (QUANTITY 100 AND REFILL 2)
     Route: 065
  13. FERROUS SULFATE [Concomitant]
     Active Substance: FERROUS SULFATE\FERROUS SULFATE, DRIED
     Indication: PRODUCT USED FOR UNKNOWN INDICATION
     Dosage: 1 DF, QD (QUANTITY 34)
     Route: 065
  14. FLONASE [Concomitant]
     Active Substance: FLUTICASONE PROPIONATE
     Indication: PRODUCT USED FOR UNKNOWN INDICATION
     Dosage: 1 DF, QD (QUANTITY 1 AND REFIL 5)
     Route: 065

REACTIONS (36)
  - Blood sodium increased [Fatal]
  - Renal failure [Unknown]
  - Hyponatraemia [Unknown]
  - Malaise [Unknown]
  - Blindness [Recovered/Resolved]
  - Diastolic dysfunction [Recovered/Resolved]
  - Arteriosclerosis [Recovered/Resolved]
  - Coordination abnormal [Recovered/Resolved]
  - Aortic valve incompetence [Recovered/Resolved]
  - Hypertension [Unknown]
  - Headache [Recovered/Resolved]
  - Pineal gland cyst [Recovered/Resolved]
  - Balance disorder [Recovered/Resolved]
  - Left ventricular hypertrophy [Recovered/Resolved]
  - Death [Fatal]
  - Cerebrovascular accident [Unknown]
  - Gait disturbance [Recovered/Resolved]
  - Poor quality sleep [Unknown]
  - Aortic valve sclerosis [Recovered/Resolved]
  - Tricuspid valve incompetence [Recovered/Resolved]
  - Dilatation atrial [Recovered/Resolved]
  - Lethargy [Fatal]
  - Rales [Unknown]
  - Eating disorder [Unknown]
  - Blood potassium increased [Unknown]
  - Mitral valve incompetence [Recovered/Resolved]
  - Fall [Recovered/Resolved]
  - Hypoglycaemia [Unknown]
  - Asthenia [Unknown]
  - Mitral valve calcification [Recovered/Resolved]
  - Dehydration [Fatal]
  - Dementia [Unknown]
  - Dyspnoea [Unknown]
  - Loss of consciousness [Unknown]
  - Vision blurred [Recovered/Resolved]
  - Amaurosis fugax [Unknown]

NARRATIVE: CASE EVENT DATE: 201112
